FAERS Safety Report 5024331-X (Version None)
Quarter: 2006Q2

REPORT INFORMATION
  Report Type: 
  Country: None (occurrence: None)
  Receive Date: 20060608
  Receipt Date: 20060608
  Transmission Date: 20061013
  Serious: Yes (Disabling, Other)
  Sender: FDA-Public Use
  Company Number: None

PATIENT
  Age: 21 Year
  Sex: Male
  Weight: 63 kg

DRUGS (1)
  1. CUBICIN [Suspect]
     Indication: STAPHYLOCOCCAL ABSCESS
     Dosage: 250 MG Q 24 H IV DRIP
     Route: 041
     Dates: start: 20060604, end: 20060606

REACTIONS (2)
  - RASH GENERALISED [None]
  - RASH MACULO-PAPULAR [None]
